FAERS Safety Report 10502970 (Version 4)
Quarter: 2014Q4

REPORT INFORMATION
  Report Type: Spontaneous
  Country: US (occurrence: US)
  Receive Date: 20141007
  Receipt Date: 20141212
  Transmission Date: 20150528
  Serious: Yes (Hospitalization, Other)
  Sender: FDA-Public Use
  Company Number: US-GILEAD-2014-0117449

PATIENT
  Age: 45 Year
  Sex: Male

DRUGS (1)
  1. LETAIRIS [Suspect]
     Active Substance: AMBRISENTAN
     Indication: PRODUCT USED FOR UNKNOWN INDICATION
     Dosage: 5 MG, UNK
     Route: 065
     Dates: start: 20131219

REACTIONS (7)
  - Dyspnoea [Unknown]
  - Respiratory failure [Unknown]
  - Renal failure [Unknown]
  - General physical health deterioration [Unknown]
  - Oedema [Unknown]
  - Nephropathy [Unknown]
  - Pulmonary arterial hypertension [Unknown]
